FAERS Safety Report 9116551 (Version 1)
Quarter: 2013Q1

REPORT INFORMATION
  Report Type: Spontaneous
  Country: IN (occurrence: IN)
  Receive Date: 20130225
  Receipt Date: 20130225
  Transmission Date: 20140127
  Serious: Yes (Life-Threatening)
  Sender: FDA-Public Use
  Company Number: IN-B.I. PHARMACEUTICALS,INC./RIDGEFIELD-2013-CS-00191IG

PATIENT
  Sex: Male
  Weight: 72 kg

DRUGS (2)
  1. TRAJENTA [Suspect]
     Indication: BLOOD GLUCOSE INCREASED
     Dates: start: 20130112, end: 20130122
  2. INSULIN [Concomitant]
     Indication: DIABETES MELLITUS

REACTIONS (2)
  - Renal function test abnormal [Recovered/Resolved]
  - Off label use [Unknown]
